FAERS Safety Report 6460233-X (Version None)
Quarter: 2009Q4

REPORT INFORMATION
  Report Type: 
  Country: None (occurrence: None)
  Receive Date: 20091130
  Receipt Date: 20091123
  Transmission Date: 20100525
  Serious: Yes (Other)
  Sender: FDA-Public Use
  Company Number: GB-RANBAXY-2009RR-26485

PATIENT
  Age: 54 Year
  Sex: Male
  Weight: 43.5 kg

DRUGS (13)
  1. ACYCLOVIR [Suspect]
     Indication: HERPES ZOSTER
     Dosage: 4000 MG, UNK
     Route: 048
     Dates: start: 20051015, end: 20061015
  2. ACYCLOVIR [Suspect]
     Dosage: 800 MG, UNK
     Route: 048
     Dates: start: 20061001, end: 20061001
  3. NEORECORMON [Suspect]
     Indication: NEPHROGENIC ANAEMIA
     Dosage: 2000 IU, UNK
     Route: 058
     Dates: start: 19900101
  4. NEORECORMON [Suspect]
     Dosage: 2000 IU, 2/WEEK
     Route: 058
     Dates: start: 20040902
  5. NEORECORMON [Suspect]
     Dosage: 8000 IU, 3/WEEK
     Dates: start: 19900615, end: 20070224
  6. NEORECORMON [Suspect]
     Route: 058
  7. ALFACALCIDOL [Concomitant]
     Dosage: 0.5 MG, UNK
     Dates: start: 20040902
  8. AMLODIPINE [Concomitant]
     Dosage: 10 MG, UNK
     Dates: start: 20040902, end: 20060314
  9. ATENOLOL [Concomitant]
     Dosage: 25 MG, QD
     Dates: start: 20060314, end: 20070102
  10. CALCICHEW [Concomitant]
     Dosage: UNK
     Dates: start: 20040902
  11. ENALAPRIL MALEATE [Concomitant]
     Dosage: 20 MG, QD
     Dates: start: 20040902, end: 20070102
  12. GABAPENTIN [Concomitant]
     Dosage: 100 MG, UNK
     Dates: start: 20070102
  13. XENICAL [Concomitant]

REACTIONS (3)
  - APLASIA PURE RED CELL [None]
  - ARTHRALGIA [None]
  - HERPES ZOSTER [None]
